FAERS Safety Report 21367467 (Version 1)
Quarter: 2022Q3

REPORT INFORMATION
  Report Type: Spontaneous
  Country: US (occurrence: US)
  Receive Date: 20220923
  Receipt Date: 20220923
  Transmission Date: 20221026
  Serious: Yes (Other)
  Sender: FDA-Public Use
  Company Number: US-BAXTER-2022BAX019897

PATIENT

DRUGS (1)
  1. DEXTROSE [Suspect]
     Active Substance: DEXTROSE
     Dosage: ENTIRE 250 MLS BAG OF D10 (10% DEXTROSE SOLUTION)
     Route: 065

REACTIONS (1)
  - Blood glucose increased [Unknown]
